FAERS Safety Report 7375870-8 (Version None)
Quarter: 2011Q1

REPORT INFORMATION
  Report Type: 
  Country: None (occurrence: None)
  Receive Date: 20110325
  Receipt Date: 20110318
  Transmission Date: 20110831
  Serious: Yes (Other)
  Sender: FDA-Public Use
  Company Number: A0919708A

PATIENT

DRUGS (1)
  1. RYTHMOL [Suspect]
     Route: 065

REACTIONS (1)
  - ATRIAL FIBRILLATION [None]
